FAERS Safety Report 6200427-1 (Version None)
Quarter: 2009Q2

REPORT INFORMATION
  Report Type: 
  Country: None (occurrence: None)
  Receive Date: 20090522
  Receipt Date: 20090508
  Transmission Date: 20091009
  Serious: Yes (Other)
  Sender: FDA-Public Use
  Company Number: RS-GENENTECH-283174

PATIENT
  Sex: Male

DRUGS (3)
  1. BEVACIZUMAB [Suspect]
     Indication: COLORECTAL CANCER
     Dosage: 400 MG, Q2W
     Route: 042
     Dates: start: 20080818, end: 20081115
  2. CAPECITABINE [Suspect]
     Indication: COLORECTAL CANCER
     Dosage: 300 MG, Q3W
     Route: 048
     Dates: end: 20081115
  3. ELOXATIN [Suspect]
     Indication: COLORECTAL CANCER
     Dosage: 200 MG, UNK
     Route: 065
     Dates: end: 20081115

REACTIONS (4)
  - GASTROINTESTINAL INFLAMMATION [None]
  - ILEUS [None]
  - NEUTROPENIA [None]
  - THROMBOCYTOPENIA [None]
